FAERS Safety Report 25532890 (Version 2)
Quarter: 2025Q3

REPORT INFORMATION
  Report Type: Report from Study
  Country: US (occurrence: US)
  Receive Date: 20250709
  Receipt Date: 20250801
  Transmission Date: 20251021
  Serious: No
  Sender: SUNOVION
  Company Number: US-SUMITOMO PHARMA SWITZERLAND GMBH-2025SPA007638

PATIENT

DRUGS (38)
  1. ORGOVYX [Suspect]
     Active Substance: RELUGOLIX
     Indication: Prostate cancer
     Route: 048
     Dates: start: 20250603, end: 20250603
  2. ORGOVYX [Suspect]
     Active Substance: RELUGOLIX
     Route: 048
     Dates: start: 20250604
  3. XTANDI [Suspect]
     Active Substance: ENZALUTAMIDE
     Indication: Product used for unknown indication
     Route: 065
  4. ALBUTEROL [Concomitant]
     Active Substance: ALBUTEROL
     Route: 065
  5. ALPHA LIPOIC ACID [Concomitant]
     Active Substance: .ALPHA.-LIPOIC ACID
     Route: 065
  6. AMPHETAMINE [Concomitant]
     Active Substance: AMPHETAMINE
     Route: 065
  7. ASPIRIN [Concomitant]
     Active Substance: ASPIRIN
     Route: 065
  8. Beta sitosterol [Concomitant]
     Route: 048
  9. BIOTIN [Concomitant]
     Active Substance: BIOTIN
     Route: 065
  10. DIETARY SUPPLEMENT\HERBALS\INDIAN FRANKINCENSE [Concomitant]
     Active Substance: DIETARY SUPPLEMENT\HERBALS\INDIAN FRANKINCENSE
     Route: 065
  11. Butchers Broom [Concomitant]
     Route: 065
  12. CINNAMON [Concomitant]
     Active Substance: CINNAMON
     Route: 065
  13. CLARITIN [Concomitant]
     Active Substance: LORATADINE
     Route: 065
  14. COENZYME Q10 [Concomitant]
     Active Substance: DIETARY SUPPLEMENT\UBIDECARENONE
     Route: 065
  15. FLONASE [Concomitant]
     Active Substance: FLUTICASONE PROPIONATE
     Route: 065
  16. GABAPENTIN [Concomitant]
     Active Substance: GABAPENTIN
     Route: 065
  17. CHONDROITIN SULFATE (BOVINE)\GLUCOSAMINE HYDROCHLORIDE [Concomitant]
     Active Substance: CHONDROITIN SULFATE (BOVINE)\GLUCOSAMINE HYDROCHLORIDE
     Route: 065
  18. IBUPROFEN [Concomitant]
     Active Substance: IBUPROFEN
     Route: 065
  19. KRILL OIL [Concomitant]
     Active Substance: DIETARY SUPPLEMENT\KRILL OIL
     Route: 065
  20. LOSARTAN [Concomitant]
     Active Substance: LOSARTAN
     Route: 065
  21. LUPRON [Concomitant]
     Active Substance: LEUPROLIDE ACETATE
     Route: 065
  22. MAGNESIUM [Concomitant]
     Active Substance: MAGNESIUM
     Route: 065
  23. MALIC ACID [Concomitant]
     Active Substance: MALIC ACID
     Route: 065
  24. METFORMIN [Concomitant]
     Active Substance: METFORMIN HYDROCHLORIDE
     Route: 065
  25. MOUNJARO [Concomitant]
     Active Substance: TIRZEPATIDE
     Route: 065
  26. VITAMINS [Concomitant]
     Active Substance: VITAMINS
     Route: 048
  27. PANTOTHENIC ACID [Concomitant]
     Active Substance: PANTOTHENIC ACID
     Route: 065
  28. PSEUDOEPHEDRINE [Concomitant]
     Active Substance: PSEUDOEPHEDRINE
     Route: 065
  29. ROSUVASTATIN [Concomitant]
     Active Substance: ROSUVASTATIN
     Route: 065
  30. SERTRALINE [Concomitant]
     Active Substance: SERTRALINE HYDROCHLORIDE
     Route: 065
  31. HERBALS\TURMERIC [Concomitant]
     Active Substance: HERBALS\TURMERIC
     Route: 065
  32. VANADIUM [Concomitant]
     Active Substance: VANADIUM
     Route: 065
  33. VENTOLIN [Concomitant]
     Active Substance: ALBUTEROL SULFATE
     Route: 065
  34. VITAMIN B1 [Concomitant]
     Active Substance: THIAMINE HYDROCHLORIDE
     Route: 065
  35. VITAMIN B12 [Concomitant]
     Active Substance: CYANOCOBALAMIN
     Route: 065
  36. VITAMIN D3 [Concomitant]
     Active Substance: CHOLECALCIFEROL
     Route: 065
  37. PUMPKIN SEED OIL [Concomitant]
     Active Substance: PUMPKIN SEED OIL
     Route: 065
  38. Metamucil 4 in 1 fiber [Concomitant]
     Route: 065

REACTIONS (8)
  - Epistaxis [Unknown]
  - Presyncope [Recovered/Resolved]
  - Decreased appetite [Unknown]
  - Mucosal inflammation [Unknown]
  - Dizziness [Recovered/Resolved]
  - Constipation [Unknown]
  - Fatigue [Unknown]
  - Product dose omission issue [Unknown]
